FAERS Safety Report 16816931 (Version 1)
Quarter: 2019Q3

REPORT INFORMATION
  Report Type: Spontaneous
  Country: US (occurrence: US)
  Receive Date: 20190917
  Receipt Date: 20190917
  Transmission Date: 20191005
  Serious: Yes (Other)
  Sender: FDA-Public Use
  Company Number: US-HIKMA PHARMACEUTICALS USA INC.-US-H14001-19-04957

PATIENT

DRUGS (1)
  1. SODIUM POLYSTYRENE SULFONATE. [Suspect]
     Active Substance: SODIUM POLYSTYRENE SULFONATE
     Indication: HYPERKALAEMIA
     Dosage: SUSPENDED IN 33% SORBITOL;
     Route: 048

REACTIONS (3)
  - Colitis ischaemic [Unknown]
  - Rectal haemorrhage [Unknown]
  - Intestinal ischaemia [Unknown]
